FAERS Safety Report 9916895 (Version 2)
Quarter: 2020Q3

REPORT INFORMATION
  Report Type: Report from Study
  Country: GB (occurrence: GB)
  Receive Date: 20140221
  Receipt Date: 20140311
  Transmission Date: 20201104
  Serious: Yes (Hospitalization, Other)
  Sender: FDA-Public Use
  Company Number: PHHY2014GB019698

PATIENT
  Age: 69 Year
  Sex: Male

DRUGS (17)
  1. DEXAMETHASONE. [Concomitant]
     Active Substance: DEXAMETHASONE
     Indication: VOMITING
     Dosage: 4 MG, UNK
     Route: 048
     Dates: start: 20130702, end: 20130705
  2. LATANAPROST/TIMOLOL [Concomitant]
     Indication: GLAUCOMA
     Dosage: 1 GTT, UNK
     Dates: start: 20130810
  3. LOSARTAN. [Concomitant]
     Active Substance: LOSARTAN
     Indication: HYPERTENSION
     Route: 048
  4. 5?FLUOROURACIL [Suspect]
     Active Substance: FLUOROURACIL
     Dosage: 4200 MG, UNK
     Route: 042
     Dates: start: 20130618, end: 20130724
  5. AMIODARONE [Concomitant]
     Active Substance: AMIODARONE
     Indication: ARRHYTHMIA
     Route: 048
  6. THYROXINE [Concomitant]
     Active Substance: LEVOTHYROXINE
     Indication: HYPOTHYROIDISM
     Dosage: 50 UG, UNK
     Route: 048
     Dates: start: 20130810
  7. 5?FLUOROURACIL [Suspect]
     Active Substance: FLUOROURACIL
     Indication: GASTROOESOPHAGEAL CANCER
     Dosage: 700 MG, UNK
     Route: 040
     Dates: start: 20130618, end: 20130724
  8. ONARTUZUMAB. [Suspect]
     Active Substance: ONARTUZUMAB
     Indication: GASTROOESOPHAGEAL CANCER
     Dosage: 600 MG, BIW
     Route: 042
     Dates: start: 20130618, end: 20130702
  9. OXALIPLATIN. [Suspect]
     Active Substance: OXALIPLATIN
     Indication: GASTROOESOPHAGEAL CANCER
     Dosage: 150 MG, UNK
     Route: 042
     Dates: start: 20130618, end: 20130724
  10. METOCLOPRAMIDE. [Concomitant]
     Active Substance: METOCLOPRAMIDE
  11. ONDANSETRON [Concomitant]
     Active Substance: ONDANSETRON
     Indication: VOMITING
     Dosage: 8 MG, UNK
     Route: 042
     Dates: start: 20130618, end: 20130618
  12. LANSOPRAZOLE. [Concomitant]
     Active Substance: LANSOPRAZOLE
     Route: 048
     Dates: start: 20130810
  13. DEXAMETHASONE. [Concomitant]
     Active Substance: DEXAMETHASONE
     Indication: NAUSEA
     Dosage: 2 MG, UNK
     Dates: start: 20130810
  14. ASPIRIN. [Concomitant]
     Active Substance: ASPIRIN
     Dosage: 75 MG, UNK
     Route: 048
  15. MAGNESIUM HYDROXIDE. [Concomitant]
     Active Substance: MAGNESIUM HYDROXIDE
  16. FOLINIC ACID [Suspect]
     Active Substance: LEUCOVORIN
     Indication: GASTROOESOPHAGEAL CANCER
     Dosage: 350 MG, BIW
     Route: 042
     Dates: start: 20130618, end: 20130702
  17. CLEXANE [Concomitant]
     Active Substance: ENOXAPARIN SODIUM
     Dosage: 100 MG, UNK
     Dates: start: 20130810

REACTIONS (18)
  - Blood phosphorus decreased [Unknown]
  - Gastrooesophageal cancer [Unknown]
  - White blood cell count decreased [Unknown]
  - Diarrhoea [Recovered/Resolved]
  - Dysphagia [Unknown]
  - Eating disorder [Recovered/Resolved]
  - Blood creatine decreased [Unknown]
  - Blood sodium decreased [Unknown]
  - Blood albumin decreased [Unknown]
  - Malignant neoplasm progression [Unknown]
  - Weight decreased [Recovered/Resolved]
  - Decreased appetite [Recovered/Resolved]
  - Blood potassium decreased [Unknown]
  - Protein total decreased [Unknown]
  - Red blood cell count abnormal [Unknown]
  - C-reactive protein decreased [Unknown]
  - Lymphocyte count decreased [Unknown]
  - Haemoglobin decreased [Unknown]

NARRATIVE: CASE EVENT DATE: 20130708
